FAERS Safety Report 9163838 (Version 1)
Quarter: 2013Q1

REPORT INFORMATION
  Report Type: Spontaneous
  Country: IT (occurrence: IT)
  Receive Date: 20130314
  Receipt Date: 20130314
  Transmission Date: 20140127
  Serious: Yes (Other)
  Sender: FDA-Public Use
  Company Number: IT-ELI_LILLY_AND_COMPANY-IT201303001454

PATIENT
  Sex: Male

DRUGS (2)
  1. HUMALOG LISPRO [Suspect]
     Dosage: UNK, EACH EVENING
  2. NOVORAPID [Concomitant]

REACTIONS (2)
  - Gastrointestinal neoplasm [Unknown]
  - Drug hypersensitivity [Unknown]
